FAERS Safety Report 15918880 (Version 1)
Quarter: 2019Q1

REPORT INFORMATION
  Report Type: Spontaneous
  Country: US (occurrence: US)
  Receive Date: 20190205
  Receipt Date: 20190205
  Transmission Date: 20190417
  Serious: Yes (Hospitalization)
  Sender: FDA-Public Use
  Company Number: US-SIGMAPHARM LABORATORIES, LLC-2019SIG00015

PATIENT
  Age: 56 Year
  Sex: Female

DRUGS (4)
  1. ASENAPINE. [Suspect]
     Active Substance: ASENAPINE
     Dosage: 20 MG, 1X/DAY (AT NIGHT)
     Route: 065
  2. FUROSEMIDE. [Concomitant]
     Active Substance: FUROSEMIDE
     Dosage: 40 MG, 1X/DAY
     Route: 065
  3. BUPRENORPHINE/NALOXONE [Concomitant]
     Active Substance: BUPRENORPHINE\NALOXONE
     Dosage: 4 MG/1 MG, 3X/DAY
     Route: 065
  4. CLONAZEPAM. [Concomitant]
     Active Substance: CLONAZEPAM
     Dosage: 1 MG, 3X/DAY
     Route: 065

REACTIONS (2)
  - Respiratory failure [Recovering/Resolving]
  - Spasmodic dysphonia [Recovering/Resolving]
